FAERS Safety Report 8257161-6 (Version None)
Quarter: 2012Q2

REPORT INFORMATION
  Report Type: 
  Country: None (occurrence: None)
  Receive Date: 20120403
  Receipt Date: 20120327
  Transmission Date: 20120825
  Serious: Yes (Hospitalization)
  Sender: FDA-Public Use
  Company Number: GR-ABBOTT-12P-066-0919033-00

PATIENT
  Sex: Female
  Weight: 98 kg

DRUGS (3)
  1. DAPTOMYCIN [Concomitant]
     Indication: INFLAMMATION
     Dosage: 500GRAM PER DAY
     Route: 042
     Dates: start: 20100922, end: 20100927
  2. HUMIRA [Suspect]
     Indication: PSORIASIS
     Dates: start: 20101007
  3. HUMIRA [Suspect]
     Indication: PSORIATIC ARTHROPATHY
     Route: 058
     Dates: start: 20100914

REACTIONS (4)
  - SKIN EXFOLIATION [None]
  - OEDEMA PERIPHERAL [None]
  - PAIN IN EXTREMITY [None]
  - PUSTULAR PSORIASIS [None]
